FAERS Safety Report 5680599-8 (Version None)
Quarter: 2008Q1

REPORT INFORMATION
  Report Type: 
  Country: None (occurrence: None)
  Receive Date: 20080326
  Receipt Date: 20080317
  Transmission Date: 20080703
  Serious: Yes (Other)
  Sender: FDA-Public Use
  Company Number: US-WYE-H03169508

PATIENT
  Sex: Female
  Weight: 79.45 kg

DRUGS (7)
  1. EFFEXOR XR [Suspect]
     Indication: ANXIETY
     Route: 048
     Dates: start: 20070501, end: 20071201
  2. EFFEXOR XR [Suspect]
     Route: 048
     Dates: start: 20071201, end: 20080301
  3. EFFEXOR XR [Suspect]
     Dates: start: 20080301, end: 20080313
  4. EFFEXOR XR [Suspect]
     Route: 048
     Dates: start: 20080314
  5. ATENOLOL [Concomitant]
     Indication: TACHYCARDIA
  6. ADDERALL 10 [Concomitant]
     Indication: FATIGUE
  7. NEXIUM [Concomitant]
     Indication: BARRETT'S OESOPHAGUS

REACTIONS (14)
  - DIZZINESS [None]
  - DRUG WITHDRAWAL SYNDROME [None]
  - FEELING ABNORMAL [None]
  - FLAT AFFECT [None]
  - HOT FLUSH [None]
  - HYPERHIDROSIS [None]
  - HYPOTENSION [None]
  - INFLUENZA [None]
  - MENTAL IMPAIRMENT [None]
  - MIGRAINE [None]
  - NAUSEA [None]
  - PALLOR [None]
  - PARAESTHESIA [None]
  - PULSE ABSENT [None]
